FAERS Safety Report 18761921 (Version 1)
Quarter: 2021Q1

REPORT INFORMATION
  Report Type: Spontaneous
  Country: US (occurrence: US)
  Receive Date: 20210118
  Receipt Date: 20210118
  Transmission Date: 20210419
  Serious: No
  Sender: FDA-Public Use
  Company Number: None

PATIENT
  Age: 53 Year
  Sex: Male
  Weight: 82.56 kg

DRUGS (9)
  1. LOSARTAN. [Concomitant]
     Active Substance: LOSARTAN
  2. BACLOFEN. [Concomitant]
     Active Substance: BACLOFEN
  3. ROSUVASTATIN 10MG [Suspect]
     Active Substance: ROSUVASTATIN
     Route: 048
  4. CALCITRIOL. [Concomitant]
     Active Substance: CALCITRIOL
  5. ZETIA [Suspect]
     Active Substance: EZETIMIBE
  6. COENZYME Q10 [Concomitant]
     Active Substance: DIETARY SUPPLEMENT\UBIDECARENONE
  7. LIPITOR [Suspect]
     Active Substance: ATORVASTATIN CALCIUM
     Route: 048
  8. ALPRAZOLAM. [Concomitant]
     Active Substance: ALPRAZOLAM
  9. FLONASE [Concomitant]
     Active Substance: FLUTICASONE PROPIONATE

REACTIONS (5)
  - Muscle spasms [None]
  - Pain [None]
  - Burning sensation [None]
  - Myalgia [None]
  - Rash [None]

NARRATIVE: CASE EVENT DATE: 20091218
